FAERS Safety Report 5225317-2 (Version None)
Quarter: 2007Q1

REPORT INFORMATION
  Report Type: 
  Country: None (occurrence: None)
  Receive Date: 20070131
  Receipt Date: 20070123
  Transmission Date: 20070707
  Serious: Yes (Hospitalization)
  Sender: FDA-Public Use
  Company Number: FR-AVENTIS-200710281FR

PATIENT
  Age: 45 Year
  Sex: Female
  Weight: 50 kg

DRUGS (9)
  1. RIFADIN [Suspect]
     Indication: TUBERCULOSIS
     Route: 048
     Dates: start: 20061212, end: 20070108
  2. BACTRIM [Suspect]
     Indication: DRUG USE FOR UNKNOWN INDICATION
     Route: 048
     Dates: start: 20061214, end: 20070108
  3. CORTANCYL [Concomitant]
     Indication: BRAIN OEDEMA
  4. CORTANCYL [Concomitant]
     Indication: PROPHYLAXIS
  5. PIRILENE [Concomitant]
     Indication: TUBERCULOSIS
     Route: 048
     Dates: start: 20061212
  6. ETHAMBUTOL HYDROCHLORIDE [Concomitant]
     Indication: TUBERCULOSIS
     Route: 048
  7. RIMIFON [Concomitant]
     Indication: TUBERCULOSIS
     Route: 048
     Dates: start: 20061212
  8. HALDOL [Concomitant]
     Indication: SCHIZOPHRENIA
     Route: 048
  9. TERCIAN                            /00759301/ [Concomitant]
     Indication: SCHIZOPHRENIA
     Dates: start: 20061222

REACTIONS (4)
  - HYPERHIDROSIS [None]
  - PYREXIA [None]
  - RASH MACULO-PAPULAR [None]
  - RASH PRURITIC [None]
